FAERS Safety Report 15439799 (Version 1)
Quarter: 2018Q3

REPORT INFORMATION
  Report Type: Spontaneous
  Country: US (occurrence: US)
  Receive Date: 20180928
  Receipt Date: 20180928
  Transmission Date: 20181010
  Serious: No
  Sender: FDA-Public Use
  Company Number: US-SHIRE-US201837346

PATIENT
  Sex: Male

DRUGS (1)
  1. PENTASA [Suspect]
     Active Substance: MESALAMINE
     Indication: CROHN^S DISEASE
     Dosage: 500 MG, 1X/DAY:QD
     Dates: start: 20180918

REACTIONS (7)
  - Swelling [Unknown]
  - Chest discomfort [Unknown]
  - Thinking abnormal [Unknown]
  - Pain [Unknown]
  - Condition aggravated [Unknown]
  - Nervousness [Unknown]
  - Anxiety [Unknown]
